FAERS Safety Report 7314501-X (Version None)
Quarter: 2011Q1

REPORT INFORMATION
  Report Type: 
  Country: None (occurrence: None)
  Receive Date: 20110225
  Receipt Date: 20100914
  Transmission Date: 20110831
  Serious: No
  Sender: FDA-Public Use
  Company Number: US-MYLANLABS-2010S1016912

PATIENT
  Age: 16 Year
  Sex: Female

DRUGS (2)
  1. AMNESTEEM [Suspect]
     Dosage: 40MG DAILY ALTERNATING WITH 80MG EVERY OTHER DAY
     Dates: start: 20100501, end: 20100913
  2. AMNESTEEM [Suspect]
     Indication: ACNE
     Dosage: 40MG DAILY ALTERNATING WITH 80MG EVERY OTHER DAY
     Dates: start: 20100501, end: 20100913

REACTIONS (3)
  - DIARRHOEA [None]
  - ABDOMINAL PAIN [None]
  - CONSTIPATION [None]
